FAERS Safety Report 25368611 (Version 1)
Quarter: 2025Q2

REPORT INFORMATION
  Report Type: Spontaneous
  Country: US (occurrence: US)
  Receive Date: 20250528
  Receipt Date: 20250528
  Transmission Date: 20250716
  Serious: Yes (Other)
  Sender: ABBVIE
  Company Number: US-ABBVIE-6297964

PATIENT
  Age: 43 Year
  Sex: Female

DRUGS (1)
  1. INFED [Suspect]
     Active Substance: IRON DEXTRAN
     Indication: Product used for unknown indication
     Route: 042
     Dates: start: 20250303

REACTIONS (7)
  - Chest pain [Recovered/Resolved]
  - Flushing [Recovered/Resolved]
  - Dyspnoea [Recovered/Resolved]
  - Urticaria [Unknown]
  - Swelling face [Unknown]
  - Pelvic pain [Unknown]
  - Back pain [Unknown]

NARRATIVE: CASE EVENT DATE: 20250303
